FAERS Safety Report 7685205-9 (Version None)
Quarter: 2011Q3

REPORT INFORMATION
  Report Type: 
  Country: None (occurrence: None)
  Receive Date: 20110816
  Receipt Date: 20110811
  Transmission Date: 20111222
  Serious: Yes (Other)
  Sender: FDA-Public Use
  Company Number: US-PFIZER INC-2011185257

PATIENT
  Sex: Male
  Weight: 90.703 kg

DRUGS (3)
  1. LYRICA [Suspect]
     Indication: NERVE INJURY
     Dosage: 100 MG, 3X/DAY
     Dates: start: 20060101
  2. LYRICA [Suspect]
     Dosage: 200 MG, 2X/DAY
  3. LYRICA [Suspect]
     Dosage: 75 MG, 2X/DAY
     Dates: end: 20110811

REACTIONS (5)
  - MALAISE [None]
  - FATIGUE [None]
  - VISION BLURRED [None]
  - EYELID FUNCTION DISORDER [None]
  - CHILLS [None]
